FAERS Safety Report 8778581 (Version 2)
Quarter: 2012Q4

REPORT INFORMATION
  Report Type: 
  Country: GB (occurrence: GB)
  Receive Date: 20120912
  Receipt Date: 20120917
  Transmission Date: 20130627
  Serious: Yes (Hospitalization)
  Sender: FDA-Public Use
  Company Number: PHHY2012GB078756

PATIENT
  Age: 63 Year
  Sex: Female

DRUGS (4)
  1. LANSOPRAZOLE [Suspect]
     Indication: GASTROOESOPHAGEAL REFLUX DISEASE
     Dosage: 30 mg, QD
  2. ATORVASTATIN [Concomitant]
     Indication: HYPERLIPIDAEMIA
  3. THIAMINE [Concomitant]
  4. VITAMIN B COMPLEX [Concomitant]

REACTIONS (6)
  - Grand mal convulsion [Recovered/Resolved]
  - Hypomagnesaemia [Recovered/Resolved]
  - Hypocalcaemia [Recovered/Resolved]
  - Paraesthesia [Recovered/Resolved]
  - Blood glucose increased [Recovered/Resolved]
  - Urine magnesium decreased [Recovered/Resolved]
